FAERS Safety Report 4806568-5 (Version None)
Quarter: 2005Q4

REPORT INFORMATION
  Report Type: 
  Country: None (occurrence: None)
  Receive Date: 20051019
  Receipt Date: 20051003
  Transmission Date: 20060501
  Serious: Yes (Hospitalization)
  Sender: FDA-Public Use
  Company Number: USA041080659

PATIENT
  Age: 14 Year
  Sex: Male
  Weight: 114 kg

DRUGS (1)
  1. STRATTERA [Suspect]
     Indication: ATTENTION DEFICIT/HYPERACTIVITY DISORDER
     Dosage: 120 MG DAY
     Dates: start: 20030101

REACTIONS (6)
  - BLOOD PRESSURE INCREASED [None]
  - HEART RATE INCREASED [None]
  - INSOMNIA [None]
  - PRESCRIBED OVERDOSE [None]
  - SUICIDE ATTEMPT [None]
  - WEIGHT INCREASED [None]
